FAERS Safety Report 8866181 (Version 1)
Quarter: 2012Q4

REPORT INFORMATION
  Report Type: 
  Country: FR (occurrence: FR)
  Receive Date: 20121025
  Receipt Date: 20121025
  Transmission Date: 20130627
  Serious: Yes (Other)
  Sender: FDA-Public Use
  Company Number: FR-B.I. PHARMACEUTICALS,INC./RIDGEFIELD-2012-FF-01518FF

PATIENT
  Age: 80 Year
  Sex: Male

DRUGS (6)
  1. PRADAXA [Suspect]
     Indication: ATRIAL FIBRILLATION
     Dosage: 220 mg
     Route: 048
     Dates: start: 201205
  2. CORDARONE [Concomitant]
     Dosage: 1 tablet daily 5 days/7
     Route: 048
     Dates: end: 201210
  3. HEMIGOXINE [Concomitant]
     Dosage: 1 tablet daily
     Route: 048
  4. LASILIX [Concomitant]
  5. RAMIPRIL [Concomitant]
     Dosage: 2.5 mg
  6. TAHOR [Concomitant]

REACTIONS (1)
  - Prothrombin time shortened [Not Recovered/Not Resolved]
